FAERS Safety Report 7000229-2 (Version None)
Quarter: 2010Q3

REPORT INFORMATION
  Report Type: 
  Country: None (occurrence: None)
  Receive Date: 20100920
  Receipt Date: 20090730
  Transmission Date: 20110219
  Serious: Yes (Other)
  Sender: FDA-Public Use
  Company Number: US-ASTRAZENECA-2009UW11912

PATIENT
  Age: 40 Year
  Sex: Female
  Weight: 128.8 kg

DRUGS (9)
  1. SEROQUEL [Suspect]
     Indication: BIPOLAR DISORDER
     Dosage: UP TO 400 MG
     Route: 048
     Dates: start: 20040101
  2. SEROQUEL [Suspect]
     Indication: DEPRESSION
     Dosage: UP TO 400 MG
     Route: 048
     Dates: start: 20040101
  3. RISPERDAL [Concomitant]
     Dates: start: 20040101, end: 20080101
  4. RISPERDAL [Concomitant]
     Dosage: 0.5-3.0 MG
     Dates: start: 20070401, end: 20080601
  5. ADIPEX [Concomitant]
  6. AMBIEN [Concomitant]
  7. XANAX [Concomitant]
  8. CYMBALTA [Concomitant]
  9. VYVANSE [Concomitant]

REACTIONS (6)
  - BLOOD CHOLESTEROL INCREASED [None]
  - DIABETIC KETOACIDOSIS [None]
  - OBESITY [None]
  - PANCREATITIS [None]
  - SLEEP APNOEA SYNDROME [None]
  - TYPE 1 DIABETES MELLITUS [None]
